FAERS Safety Report 6887561-8 (Version None)
Quarter: 2010Q3

REPORT INFORMATION
  Report Type: 
  Country: None (occurrence: None)
  Receive Date: 20100730
  Receipt Date: 20100722
  Transmission Date: 20110219
  Serious: Yes (Other)
  Sender: FDA-Public Use
  Company Number: NL-ABBOTT-10P-114-0659394-00

PATIENT
  Sex: Male

DRUGS (1)
  1. KLACID SR TABLETS [Suspect]
     Indication: PHARYNGITIS
     Route: 048
     Dates: start: 20100614, end: 20100615

REACTIONS (2)
  - DEAFNESS [None]
  - PYREXIA [None]
